FAERS Safety Report 9100491 (Version 1)
Quarter: 2013Q1

REPORT INFORMATION
  Report Type: Spontaneous
  Country: BR (occurrence: BR)
  Receive Date: 20130215
  Receipt Date: 20130215
  Transmission Date: 20140127
  Serious: Yes (Death, Hospitalization)
  Sender: FDA-Public Use
  Company Number: PHHY2013BR014682

PATIENT
  Age: 70 Year
  Sex: Male
  Weight: 60 kg

DRUGS (7)
  1. TRILEPTAL [Suspect]
     Indication: BRAIN OEDEMA
     Dosage: 2 DF, DAILY
     Route: 048
  2. CARNABOL [Concomitant]
     Dosage: 1 DF, QD
     Route: 048
  3. MELOXICAM [Concomitant]
     Dosage: 1 DF, QD
     Route: 048
  4. NORIPURUM [Concomitant]
     Dosage: 1 DF, QD
     Route: 048
  5. CALCIUM D                          /00944201/ [Concomitant]
     Indication: BONE DISORDER
     Dosage: 1 DF, QD
     Route: 048
  6. HYDROCHLOROTHIAZIDE [Concomitant]
     Indication: HYPERTENSION
     Dosage: 2 DF, QD
     Route: 048
  7. CAPTOPRIL [Concomitant]
     Indication: HYPERTENSION
     Dosage: 2 DF, QD
     Route: 048

REACTIONS (1)
  - Hydrocephalus [Fatal]
